FAERS Safety Report 5126317-3 (Version None)
Quarter: 2006Q3

REPORT INFORMATION
  Report Type: 
  Country: None (occurrence: None)
  Receive Date: 20060825
  Receipt Date: 20060502
  Transmission Date: 20061208
  Serious: Yes (Hospitalization)
  Sender: FDA-Public Use
  Company Number: 06P-163-0332296-00

PATIENT
  Sex: Female
  Weight: 71.2147 kg

DRUGS (4)
  1. SYNTHROID [Suspect]
     Indication: HYPOTHYROIDISM
     Dosage: SEE IMAGE
     Route: 048
     Dates: end: 20060328
  2. SYNTHROID [Suspect]
     Indication: HYPOTHYROIDISM
     Dosage: SEE IMAGE
     Route: 048
     Dates: start: 20060329
  3. PEG-INTRON [Suspect]
     Indication: HEPATITIS C
     Dosage: 120 MCG, ONCE, SUBCUTANEOUS
     Route: 058
     Dates: start: 20060327, end: 20060327
  4. RIBAVIRIN [Suspect]
     Indication: HEPATITIS C
     Dosage: 1000 MG, 1 IN 1 D,PER ORAL
     Route: 048
     Dates: start: 20060327, end: 20060327

REACTIONS (10)
  - ARTHRALGIA [None]
  - BLOOD THYROID STIMULATING HORMONE DECREASED [None]
  - CONDUCTION DISORDER [None]
  - DRY SKIN [None]
  - DYSPNOEA [None]
  - INJECTION SITE ERYTHEMA [None]
  - MYALGIA [None]
  - PALPITATIONS [None]
  - PYURIA [None]
  - SINUS TACHYCARDIA [None]
